FAERS Safety Report 6201704-0 (Version None)
Quarter: 2009Q2

REPORT INFORMATION
  Report Type: 
  Country: None (occurrence: None)
  Receive Date: 20090520
  Receipt Date: 20090508
  Transmission Date: 20091009
  Serious: Yes (Other)
  Sender: FDA-Public Use
  Company Number: CIP09000797

PATIENT
  Age: 62 Year
  Sex: Female

DRUGS (3)
  1. ACTONEL [Suspect]
     Dosage: 35 MG ONCE WEEKLY, ORAL; 35 MG ONCE WEEKLY, ORAL
     Route: 048
     Dates: start: 20070101, end: 20090320
  2. ACTONEL [Suspect]
     Dosage: 35 MG ONCE WEEKLY, ORAL; 35 MG ONCE WEEKLY, ORAL
     Route: 048
     Dates: start: 20090328
  3. PREVACID [Concomitant]

REACTIONS (6)
  - ABDOMINAL PAIN LOWER [None]
  - ABDOMINAL RIGIDITY [None]
  - BURKITT'S LYMPHOMA [None]
  - FATIGUE [None]
  - POST PROCEDURAL COMPLICATION [None]
  - POST PROCEDURAL DIARRHOEA [None]
